FAERS Safety Report 4374497-X (Version None)
Quarter: 2004Q2

REPORT INFORMATION
  Report Type: 
  Country: None (occurrence: None)
  Receive Date: 20040602
  Receipt Date: 20040303
  Transmission Date: 20050107
  Serious: No
  Sender: FDA-Public Use
  Company Number: 200414359BWH

PATIENT
  Age: 25 Year
  Sex: Female

DRUGS (1)
  1. LEVITRA [Suspect]
     Indication: LIBIDO INCREASED
     Dosage: 20 MG ONCE ORAL
     Route: 048
     Dates: start: 20040303

REACTIONS (4)
  - CHEST PAIN [None]
  - TREMOR [None]
  - VISUAL DISTURBANCE [None]
  - VOMITING [None]
